FAERS Safety Report 4289153-6 (Version None)
Quarter: 2004Q1

REPORT INFORMATION
  Report Type: 
  Country: None (occurrence: None)
  Receive Date: 20040206
  Receipt Date: 20040122
  Transmission Date: 20041129
  Serious: Yes (Death)
  Sender: FDA-Public Use
  Company Number: 204524

PATIENT
  Age: 31 Year
  Sex: Female

DRUGS (2)
  1. HERCEPTIN [Suspect]
     Indication: BREAST CANCER
     Dosage: 1.2, INTRAVENOUS
     Route: 042
     Dates: start: 20030918, end: 20031015
  2. UNSPECIFIED DRUG (GENERIC COMPONENT(S), NOT KNOWN [Suspect]
     Indication: BREAST CANCER
     Dosage: INTRAVENOUS
     Route: 042

REACTIONS (1)
  - DISSEMINATED INTRAVASCULAR COAGULATION [None]
